FAERS Safety Report 7309263-6 (Version None)
Quarter: 2011Q1

REPORT INFORMATION
  Report Type: 
  Country: None (occurrence: None)
  Receive Date: 20110223
  Receipt Date: 20110215
  Transmission Date: 20110831
  Serious: Yes (Disabling, Other)
  Sender: FDA-Public Use
  Company Number: US-PFIZER INC-2010136815

PATIENT
  Sex: Female
  Weight: 83.9 kg

DRUGS (3)
  1. NEURONTIN [Suspect]
     Indication: DEPRESSION
  2. PRISTIQ [Concomitant]
     Dosage: UNK
  3. NEURONTIN [Suspect]
     Indication: SLEEP DISORDER
     Dosage: 600 MG, DAILY
     Route: 048

REACTIONS (12)
  - BRADYPHRENIA [None]
  - DEPENDENCE [None]
  - NERVE INJURY [None]
  - DYSSTASIA [None]
  - BALANCE DISORDER [None]
  - PAIN [None]
  - SYSTEMIC LUPUS ERYTHEMATOSUS [None]
  - MENTAL IMPAIRMENT [None]
  - MOBILITY DECREASED [None]
  - GAIT DISTURBANCE [None]
  - ENCEPHALITIS [None]
  - SOMNOLENCE [None]
